FAERS Safety Report 8181845-1 (Version None)
Quarter: 2012Q1

REPORT INFORMATION
  Report Type: 
  Country: None (occurrence: None)
  Receive Date: 20120302
  Receipt Date: 20120222
  Transmission Date: 20120608
  Serious: Yes (Hospitalization)
  Sender: FDA-Public Use
  Company Number: FR-ROCHE-1042625

PATIENT
  Sex: Male
  Weight: 56 kg

DRUGS (11)
  1. PENTASA [Concomitant]
  2. VEMURAFENIB [Suspect]
     Indication: MALIGNANT MELANOMA
     Route: 048
     Dates: start: 20110922, end: 20111025
  3. MORPHINE [Concomitant]
  4. NEXIUM [Concomitant]
  5. POLYETHYLENE GLYCOL [Concomitant]
  6. ACETAMINOPHEN [Concomitant]
  7. XANAX [Concomitant]
  8. MOUTHWASH NOS [Concomitant]
  9. TRIMEPRAZINE TARTRATE [Concomitant]
  10. MEDROL [Concomitant]
  11. LIDOCAINE [Concomitant]

REACTIONS (1)
  - MALIGNANT ASCITES [None]
